FAERS Safety Report 11982725 (Version 1)
Quarter: 2016Q1

REPORT INFORMATION
  Report Type: Spontaneous
  Country: US (occurrence: US)
  Receive Date: 20160201
  Receipt Date: 20160201
  Transmission Date: 20160526
  Serious: Yes (Other)
  Sender: FDA-Public Use
  Company Number: US-DRREDDYS-USA/USA/16/0065458

PATIENT
  Age: 66 Year
  Sex: Female
  Weight: 58.69 kg

DRUGS (3)
  1. HABITROL [Suspect]
     Active Substance: NICOTINE
     Route: 062
     Dates: start: 2014
  2. TRAMADOL. [Concomitant]
     Active Substance: TRAMADOL
     Indication: PAIN
     Route: 065
  3. HABITROL [Suspect]
     Active Substance: NICOTINE
     Indication: SMOKING CESSATION THERAPY
     Route: 062
     Dates: start: 2014

REACTIONS (4)
  - Nicotine dependence [Unknown]
  - Treatment noncompliance [Unknown]
  - Overdose [Unknown]
  - Road traffic accident [Unknown]
